FAERS Safety Report 23016281 (Version 1)
Quarter: 2023Q4

REPORT INFORMATION
  Report Type: Spontaneous
  Country: ES (occurrence: ES)
  Receive Date: 20231002
  Receipt Date: 20231002
  Transmission Date: 20240110
  Serious: Yes (Death, Other)
  Sender: FDA-Public Use
  Company Number: ES-GILEAD-2023-0644787

PATIENT
  Age: 68 Year
  Sex: Male

DRUGS (1)
  1. YESCARTA [Suspect]
     Active Substance: AXICABTAGENE CILOLEUCEL
     Indication: Diffuse large B-cell lymphoma
     Route: 065

REACTIONS (6)
  - Haemorrhagic stroke [Fatal]
  - Ischaemic stroke [Fatal]
  - Haemophagocytic lymphohistiocytosis [Fatal]
  - Cytopenia [Fatal]
  - Cytokine release syndrome [Unknown]
  - Immune effector cell-associated neurotoxicity syndrome [Unknown]

NARRATIVE: CASE EVENT DATE: 20230915
